FAERS Safety Report 7965550-X (Version None)
Quarter: 2011Q4

REPORT INFORMATION
  Report Type: 
  Country: None (occurrence: None)
  Receive Date: 20111208
  Receipt Date: 20111130
  Transmission Date: 20120403
  Serious: Yes (Other)
  Sender: FDA-Public Use
  Company Number: CN-JNJFOC-20111202321

PATIENT
  Age: 62 Year
  Sex: Female

DRUGS (1)
  1. SPORANOX [Suspect]
     Indication: ONYCHOMYCOSIS
     Route: 048
     Dates: start: 20111114, end: 20111127

REACTIONS (5)
  - DYSAESTHESIA [None]
  - PAIN [None]
  - MOBILITY DECREASED [None]
  - HEADACHE [None]
  - ASTHENIA [None]
